FAERS Safety Report 7655316-2 (Version None)
Quarter: 2011Q3

REPORT INFORMATION
  Report Type: 
  Country: None (occurrence: None)
  Receive Date: 20110801
  Receipt Date: 20110801
  Transmission Date: 20111222
  Serious: Yes (Life-Threatening, Hospitalization, Other)
  Sender: FDA-Public Use
  Company Number: 2011MA008888

PATIENT
  Age: 24 Year
  Sex: Male

DRUGS (6)
  1. CARBAMAZEPINE [Suspect]
     Indication: CONVULSION
     Dosage: 400MG; QD; UNK
  2. PHENOBARBITAL TAB [Suspect]
     Indication: CONVULSION
     Dosage: 200MG QD UNK
  3. CLONAZEPAM [Suspect]
     Indication: CONVULSION
     Dosage: 3MG; QD; UNK
  4. PHENYTOIN [Suspect]
     Indication: CONVULSION
     Dosage: 400MG; QD; UNK
  5. TOPIRAMATE [Suspect]
     Indication: CONVULSION
     Dosage: 400MG; QD; UNK
  6. LAMOTRIGINE [Suspect]
     Indication: CONVULSION
     Dosage: 50MG; QD; UNK

REACTIONS (6)
  - STATUS EPILEPTICUS [None]
  - GRAND MAL CONVULSION [None]
  - ATAXIA [None]
  - NYSTAGMUS [None]
  - HICCUPS [None]
  - TOXICITY TO VARIOUS AGENTS [None]
